FAERS Safety Report 5187795-7 (Version None)
Quarter: 2006Q4

REPORT INFORMATION
  Report Type: 
  Country: None (occurrence: None)
  Receive Date: 20061221
  Receipt Date: 20061218
  Transmission Date: 20070319
  Serious: Yes (Other)
  Sender: FDA-Public Use
  Company Number: 2006AC02356

PATIENT
  Age: 29 Year
  Sex: Female

DRUGS (3)
  1. NAROPIN [Suspect]
     Indication: LABOUR PAIN
     Dosage: INCREMENTAL DOSING
     Route: 008
  2. FENTANYL CITRATE [Suspect]
     Indication: LABOUR PAIN
     Dosage: INCREMENTAL DOSING
     Route: 008
  3. LIDOCAINE W/ EPINEPHRINE [Concomitant]
     Indication: CATHETER PLACEMENT
     Route: 003

REACTIONS (1)
  - DEAFNESS NEUROSENSORY [None]
